FAERS Safety Report 6839969-4 (Version None)
Quarter: 2010Q3

REPORT INFORMATION
  Report Type: 
  Country: None (occurrence: None)
  Receive Date: 20100707
  Receipt Date: 20100628
  Transmission Date: 20110219
  Serious: Yes (Hospitalization)
  Sender: FDA-Public Use
  Company Number: 2010MA000385

PATIENT
  Age: 56 Year
  Sex: Male

DRUGS (2)
  1. METOCLOPRAMIDE [Suspect]
     Indication: ATRIAL FIBRILLATION
     Dosage: 20 MG; Q6H; IV
     Route: 042
  2. AMIODRAONE [Concomitant]

REACTIONS (4)
  - BRADYARRHYTHMIA [None]
  - CARDIAC ARREST [None]
  - NODAL RHYTHM [None]
  - SINUS TACHYCARDIA [None]
